FAERS Safety Report 20255681 (Version 1)
Quarter: 2021Q4

REPORT INFORMATION
  Report Type: Spontaneous
  Country: US (occurrence: None)
  Receive Date: 20211229
  Receipt Date: 20211229
  Transmission Date: 20220303
  Serious: Yes (Other)
  Sender: FDA-Public Use
  Company Number: None

PATIENT
  Age: 33 Year
  Sex: Male

DRUGS (2)
  1. BAMLANIVIMAB [Suspect]
     Active Substance: BAMLANIVIMAB
     Indication: Coronavirus test positive
     Dosage: OTHER FREQUENCY : ONE TIME;?
     Route: 042
     Dates: start: 20211229, end: 20211229
  2. ETESEVIMAB [Suspect]
     Active Substance: ETESEVIMAB
     Indication: Coronavirus test positive
     Dosage: OTHER FREQUENCY : ONE TIME;?
     Route: 042
     Dates: start: 20211229, end: 20211229

REACTIONS (4)
  - Infusion related reaction [None]
  - Abdominal pain [None]
  - Pallor [None]
  - Hyperhidrosis [None]

NARRATIVE: CASE EVENT DATE: 20211229
